FAERS Safety Report 10582801 (Version 5)
Quarter: 2015Q2

REPORT INFORMATION
  Report Type: Report from Study
  Country: DE (occurrence: DE)
  Receive Date: 20141113
  Receipt Date: 20150420
  Transmission Date: 20150821
  Serious: Yes (Hospitalization)
  Sender: FDA-Public Use
  Company Number: PHHO2014DE015079

PATIENT
  Age: 8 Year
  Sex: Female

DRUGS (3)
  1. MORPHINE [Concomitant]
     Active Substance: MORPHINE
     Indication: PAIN
     Dosage: 3 MG, QD
     Route: 065
     Dates: start: 201410
  2. COTRIM E [Concomitant]
     Indication: INFECTION PROPHYLAXIS
     Dosage: 2.5 ML, BID
     Route: 048
  3. LDK378 [Suspect]
     Active Substance: CERITINIB
     Indication: MALIGNANT MELANOMA
     Dosage: 400 MG, UNK
     Route: 048
     Dates: start: 20141027, end: 20141130

REACTIONS (1)
  - Febrile neutropenia [Recovering/Resolving]

NARRATIVE: CASE EVENT DATE: 20141110
